FAERS Safety Report 19194087 (Version 2)
Quarter: 2021Q2

REPORT INFORMATION
  Report Type: Spontaneous
  Country: PL (occurrence: PL)
  Receive Date: 20210429
  Receipt Date: 20210514
  Transmission Date: 20210717
  Serious: Yes (Other)
  Sender: FDA-Public Use
  Company Number: PL-BAUSCH-BL-2021-014639

PATIENT
  Age: 75 Year
  Sex: Male

DRUGS (4)
  1. GENTAMICIN. [Suspect]
     Active Substance: GENTAMICIN
     Indication: KLEBSIELLA INFECTION
  2. GENTAMICIN. [Suspect]
     Active Substance: GENTAMICIN
     Indication: PANTOEA AGGLOMERANS INFECTION
     Route: 042
     Dates: start: 2011
  3. GENTAMICIN. [Suspect]
     Active Substance: GENTAMICIN
     Indication: PARONYCHIA
  4. GENTAMICIN. [Suspect]
     Active Substance: GENTAMICIN
     Indication: CELLULITIS

REACTIONS (2)
  - Areflexia [Not Recovered/Not Resolved]
  - Vestibular disorder [Not Recovered/Not Resolved]

NARRATIVE: CASE EVENT DATE: 2011
